FAERS Safety Report 7089844-8 (Version None)
Quarter: 2010Q4

REPORT INFORMATION
  Report Type: 
  Country: None (occurrence: None)
  Receive Date: 20101108
  Receipt Date: 20101029
  Transmission Date: 20110411
  Serious: Yes (Other)
  Sender: FDA-Public Use
  Company Number: US-AMGEN-TCS439523

PATIENT

DRUGS (2)
  1. ENBREL [Suspect]
     Indication: RHEUMATOID ARTHRITIS
     Dosage: 25 MG, QWK
     Route: 058
     Dates: start: 20090923
  2. ENBREL [Suspect]
     Dosage: UNK
     Dates: start: 20090923, end: 20100918

REACTIONS (7)
  - DRUG HYPERSENSITIVITY [None]
  - ERYTHEMA [None]
  - INJECTION SITE ERYTHEMA [None]
  - INJECTION SITE PRURITUS [None]
  - INJECTION SITE RECALL REACTION [None]
  - INJECTION SITE SWELLING [None]
  - PRURITUS [None]
